FAERS Safety Report 16900004 (Version 1)
Quarter: 2019Q4

REPORT INFORMATION
  Report Type: Spontaneous
  Country: US (occurrence: US)
  Receive Date: 20190815
  Receipt Date: 20190815
  Transmission Date: 20200122
  Serious: No
  Sender: FDA-Public Use
  Company Number: None

PATIENT
  Sex: Female

DRUGS (1)
  1. HUMIRA [Suspect]
     Active Substance: ADALIMUMAB
     Indication: RHEUMATOID ARTHRITIS
     Dosage: FREQUENCY: EVERY OTHER WEEK
     Route: 058
     Dates: start: 20171002

REACTIONS (4)
  - Injection site reaction [None]
  - Anxiety [None]
  - Palpitations [None]
  - Insomnia [None]
